FAERS Safety Report 20482454 (Version 1)
Quarter: 2022Q1

REPORT INFORMATION
  Report Type: Spontaneous
  Country: US (occurrence: US)
  Receive Date: 20220217
  Receipt Date: 20220217
  Transmission Date: 20220423
  Serious: No
  Sender: FDA-Public Use
  Company Number: US-JNJFOC-20220141429

PATIENT

DRUGS (1)
  1. TREMFYA [Suspect]
     Active Substance: GUSELKUMAB
     Indication: Product used for unknown indication
     Dosage: FREQUENCY TIME 8
     Route: 058

REACTIONS (3)
  - Anxiety [Unknown]
  - Agitation [Unknown]
  - Anxiety [Unknown]

NARRATIVE: CASE EVENT DATE: 20220119
